FAERS Safety Report 15362211 (Version 1)
Quarter: 2018Q3

REPORT INFORMATION
  Report Type: Spontaneous
  Country: US (occurrence: US)
  Receive Date: 20180907
  Receipt Date: 20180907
  Transmission Date: 20181010
  Serious: No
  Sender: FDA-Public Use
  Company Number: US-BAYER-2018-161812

PATIENT
  Sex: Female

DRUGS (5)
  1. PHILLIPS^ FIBER GOOD PLUS ENERGY SUPPORT GUMMIES [Suspect]
     Active Substance: VITAMINS
     Dosage: 3 DF, QD
     Route: 065
  2. VITAMIN E?100 [Concomitant]
  3. MIRALAX [Suspect]
     Active Substance: POLYETHYLENE GLYCOL 3350
     Indication: GASTROINTESTINAL DISORDER
     Dosage: UNK
     Route: 065
  4. CALCIUM +VIT D [Concomitant]
     Active Substance: CALCIUM\VITAMIN D
     Dosage: UNK
  5. VITAMIN D [Concomitant]
     Active Substance: CHOLECALCIFEROL

REACTIONS (1)
  - Rebound effect [Unknown]
